FAERS Safety Report 7817174-2 (Version None)
Quarter: 2011Q4

REPORT INFORMATION
  Report Type: 
  Country: None (occurrence: None)
  Receive Date: 20111017
  Receipt Date: 20111017
  Transmission Date: 20120403
  Serious: Yes (Other)
  Sender: FDA-Public Use
  Company Number: None

PATIENT
  Age: 36 Year
  Sex: Female
  Weight: 61.234 kg

DRUGS (1)
  1. LEVOFLOXACIN [Suspect]
     Indication: SINUSITIS
     Dosage: ONE DOSE
     Route: 048
     Dates: start: 20111011, end: 20111013

REACTIONS (10)
  - FEELING ABNORMAL [None]
  - MUSCLE FATIGUE [None]
  - GAIT DISTURBANCE [None]
  - PAIN [None]
  - PARAESTHESIA [None]
  - NEURALGIA [None]
  - TENDON PAIN [None]
  - FATIGUE [None]
  - ARTHRALGIA [None]
  - BONE PAIN [None]
